FAERS Safety Report 8478022-3 (Version None)
Quarter: 2012Q2

REPORT INFORMATION
  Report Type: 
  Country: None (occurrence: None)
  Receive Date: 20120629
  Receipt Date: 20120622
  Transmission Date: 20120825
  Serious: Yes (Death)
  Sender: FDA-Public Use
  Company Number: FR-JNJFOC-20120103365

PATIENT
  Sex: Male
  Weight: 52 kg

DRUGS (3)
  1. PREDNISONE TAB [Concomitant]
     Indication: RADIATION EXPOSURE
     Route: 048
     Dates: start: 20110401
  2. ZYTIGA [Suspect]
     Indication: PROSTATE CANCER
     Route: 048
     Dates: start: 20111005, end: 20111012
  3. PREDNISONE TAB [Concomitant]
     Indication: PAIN
     Route: 048
     Dates: start: 20110401

REACTIONS (4)
  - DISSEMINATED INTRAVASCULAR COAGULATION [None]
  - DIARRHOEA [None]
  - SEPTIC SHOCK [None]
  - RENAL FAILURE ACUTE [None]
